FAERS Safety Report 9700160 (Version 1)
Quarter: 2013Q4

REPORT INFORMATION
  Report Type: Spontaneous
  Country: US (occurrence: None)
  Receive Date: 20131118
  Receipt Date: 20131118
  Transmission Date: 20140711
  Serious: Yes (Hospitalization, Other)
  Sender: FDA-Public Use
  Company Number: 13-04690

PATIENT
  Sex: Female

DRUGS (1)
  1. ALBUTEROL SULFATE INHALATION SOL .083% NEPHRON PHARMACEUTICALS CORP [Suspect]
     Dosage: LOT#?A3A33B?EXP DATE?JUNE 2015

REACTIONS (2)
  - Respiratory distress [None]
  - No therapeutic response [None]
